FAERS Safety Report 21832236 (Version 1)
Quarter: 2023Q1

REPORT INFORMATION
  Report Type: Spontaneous
  Country: DE (occurrence: DE)
  Receive Date: 20230106
  Receipt Date: 20230106
  Transmission Date: 20230417
  Serious: Yes (Other)
  Sender: FDA-Public Use
  Company Number: DE-CELLTRION HEALTHCARE HUNGARY KFT-2022DE017518

PATIENT
  Age: 78 Year
  Sex: Male

DRUGS (6)
  1. DOXORUBICIN [Suspect]
     Active Substance: DOXORUBICIN
     Indication: Epstein Barr virus positive mucocutaneous ulcer
     Dosage: 3 CYCLES OF R-CHOP REGIMEN
     Route: 065
  2. RITUXIMAB [Suspect]
     Active Substance: RITUXIMAB
     Indication: Epstein Barr virus positive mucocutaneous ulcer
     Dosage: 750 MG/M2, Q3W FOR 8 CYCLES
     Route: 065
  3. RITUXIMAB [Suspect]
     Active Substance: RITUXIMAB
     Dosage: 3 CYCLES OF R-CHOP REGIMEN
     Route: 065
  4. VINCRISTINE [Suspect]
     Active Substance: VINCRISTINE
     Indication: Epstein Barr virus positive mucocutaneous ulcer
     Dosage: 3 CYCLES OF R-CHOP REGIMEN
     Route: 065
  5. CYCLOPHOSPHAMIDE [Suspect]
     Active Substance: CYCLOPHOSPHAMIDE
     Indication: Epstein Barr virus positive mucocutaneous ulcer
     Dosage: 3 CYCLES OF R-CHOP REGIMEN
     Route: 065
  6. PREDNISONE [Suspect]
     Active Substance: PREDNISONE
     Indication: Epstein Barr virus positive mucocutaneous ulcer
     Dosage: 3 CYCLES OF R-CHOP REGIMEN
     Route: 065

REACTIONS (3)
  - Hodgkin^s disease stage III [Unknown]
  - Drug ineffective for unapproved indication [Unknown]
  - Off label use [Unknown]
